FAERS Safety Report 24689900 (Version 1)
Quarter: 2024Q4

REPORT INFORMATION
  Report Type: Report from Study
  Country: US (occurrence: US)
  Receive Date: 20241203
  Receipt Date: 20241203
  Transmission Date: 20250115
  Serious: Yes (Death, Other)
  Sender: ACADIA PHARMACEUTICALS
  Company Number: US-ACADIA PHARMACEUTICALS INC.-ACA-2024-PIM-007730

PATIENT
  Age: 68 Year
  Sex: Male

DRUGS (7)
  1. NUPLAZID [Suspect]
     Active Substance: PIMAVANSERIN TARTRATE
     Indication: Parkinson^s disease
     Dosage: 34 MILLIGRAM, QD
     Route: 048
     Dates: start: 202403
  2. METOPROLOL [Concomitant]
     Active Substance: METOPROLOL
  3. CITALOPRAM [Concomitant]
     Active Substance: CITALOPRAM
  4. MYRBETRIQ [Concomitant]
     Active Substance: MIRABEGRON
  5. CARBIDOPA LEVODOPA [Concomitant]
     Active Substance: CARBIDOPA\LEVODOPA
  6. RIVASTIGMINE [Concomitant]
     Active Substance: RIVASTIGMINE
  7. DESMOPRESSIN [Concomitant]
     Active Substance: DESMOPRESSIN

REACTIONS (1)
  - Death [Fatal]

NARRATIVE: CASE EVENT DATE: 20240901
